FAERS Safety Report 23280361 (Version 1)
Quarter: 2023Q4

REPORT INFORMATION
  Report Type: Spontaneous
  Country: GB (occurrence: GB)
  Receive Date: 20231210
  Receipt Date: 20231210
  Transmission Date: 20240110
  Serious: Yes (Death)
  Sender: FDA-Public Use
  Company Number: None

PATIENT
  Age: 33 Year
  Sex: Female

DRUGS (1)
  1. AMOXICILLIN\CLAVULANATE POTASSIUM [Suspect]
     Active Substance: AMOXICILLIN\CLAVULANATE POTASSIUM
     Indication: Breast abscess
     Route: 042
     Dates: start: 20231013

REACTIONS (5)
  - Circulatory collapse [Fatal]
  - Malaise [Unknown]
  - Muscle twitching [Unknown]
  - Drooling [Unknown]
  - Cyanosis [Unknown]

NARRATIVE: CASE EVENT DATE: 20231013
